FAERS Safety Report 9031685 (Version 1)
Quarter: 2013Q1

REPORT INFORMATION
  Report Type: Spontaneous
  Country: US (occurrence: US)
  Receive Date: 20130124
  Receipt Date: 20130124
  Transmission Date: 20140127
  Serious: Yes (Hospitalization, Other)
  Sender: FDA-Public Use
  Company Number: US-PFIZER INC-2013024390

PATIENT
  Age: 82 Year
  Sex: Female
  Weight: 68.03 kg

DRUGS (2)
  1. ZITHROMAX [Suspect]
     Indication: NASOPHARYNGITIS
     Dosage: UNK
  2. ZITHROMAX [Suspect]
     Indication: FEELING ABNORMAL

REACTIONS (4)
  - Malaise [Unknown]
  - Pneumonia [Unknown]
  - Lung infection [Unknown]
  - Cardiac disorder [Unknown]
